FAERS Safety Report 9308435 (Version 1)
Quarter: 2013Q2

REPORT INFORMATION
  Report Type: Spontaneous
  Country: US (occurrence: US)
  Receive Date: 20130524
  Receipt Date: 20130524
  Transmission Date: 20140414
  Serious: No
  Sender: FDA-Public Use
  Company Number: US-BRISTOL-MYERS SQUIBB COMPANY-17457474

PATIENT
  Age: 60 Year
  Sex: Female

DRUGS (3)
  1. PRAVACHOL TABS 20 MG [Suspect]
     Dosage: REDUCED TO HALF TABLET IN EVERY OTHER DAY
  2. XANAX [Concomitant]
  3. ZYRTEC [Concomitant]

REACTIONS (8)
  - Pruritus [Unknown]
  - Paraesthesia [Unknown]
  - Heart rate irregular [Unknown]
  - Gastric disorder [Unknown]
  - Gastrooesophageal reflux disease [Unknown]
  - Arthralgia [Recovering/Resolving]
  - Myalgia [Recovering/Resolving]
  - Drug administration error [Unknown]
